FAERS Safety Report 12116123 (Version 1)
Quarter: 2016Q1

REPORT INFORMATION
  Report Type: Spontaneous
  Country: US (occurrence: US)
  Receive Date: 20160225
  Receipt Date: 20160225
  Transmission Date: 20160526
  Serious: No
  Sender: FDA-Public Use
  Company Number: US-ACTAVIS-2015-18409

PATIENT
  Age: 66 Year
  Sex: Female

DRUGS (5)
  1. CLONAZEPAM (AELLC) [Suspect]
     Active Substance: CLONAZEPAM
     Indication: TREMOR
  2. CLONAZEPAM (AELLC) [Suspect]
     Active Substance: CLONAZEPAM
     Indication: RESTLESS LEGS SYNDROME
  3. CLONAZEPAM (AELLC) [Suspect]
     Active Substance: CLONAZEPAM
     Indication: ANXIETY
  4. VIMPAT [Concomitant]
     Active Substance: LACOSAMIDE
     Indication: EPILEPSY
     Dosage: UNK, UNKNOWN
     Route: 065
  5. CLONAZEPAM (AELLC) [Suspect]
     Active Substance: CLONAZEPAM
     Indication: EPILEPSY
     Dosage: .25 MG, QPM
     Route: 048

REACTIONS (6)
  - Irritability [Not Recovered/Not Resolved]
  - Intentional product use issue [Not Recovered/Not Resolved]
  - Poor quality sleep [Not Recovered/Not Resolved]
  - Drug ineffective [Not Recovered/Not Resolved]
  - Restless legs syndrome [Not Recovered/Not Resolved]
  - Depressed mood [Not Recovered/Not Resolved]

NARRATIVE: CASE EVENT DATE: 20150122
